FAERS Safety Report 9379096 (Version 2)
Quarter: 2013Q3

REPORT INFORMATION
  Report Type: Report from Study
  Country: IL (occurrence: IL)
  Receive Date: 20130702
  Receipt Date: 20130708
  Transmission Date: 20140515
  Serious: Yes (Hospitalization)
  Sender: FDA-Public Use
  Company Number: PHHY2013IL067420

PATIENT
  Sex: Female

DRUGS (2)
  1. SANDOSTATIN LAR [Suspect]
     Indication: CARCINOID SYNDROME
     Dosage: 30 MG, Q 4 W
     Dates: start: 20100409
  2. SANDOSTATIN LAR [Suspect]
     Dosage: 30 MG, Q 4 W
     Dates: start: 20130627

REACTIONS (1)
  - Hyponatraemia [Unknown]
